FAERS Safety Report 6767040-9 (Version None)
Quarter: 2010Q2

REPORT INFORMATION
  Report Type: 
  Country: None (occurrence: None)
  Receive Date: 20100611
  Receipt Date: 20100604
  Transmission Date: 20101027
  Serious: Yes (Death, Other)
  Sender: FDA-Public Use
  Company Number: US-AMGEN-QUU414180

PATIENT
  Sex: Male
  Weight: 59.9 kg

DRUGS (4)
  1. NPLATE [Suspect]
     Indication: IDIOPATHIC THROMBOCYTOPENIC PURPURA
     Route: 058
     Dates: start: 20090407, end: 20090528
  2. ARANESP [Suspect]
     Indication: RENAL FAILURE CHRONIC
     Route: 058
     Dates: start: 20081110, end: 20090305
  3. DECADRON [Concomitant]
     Dates: start: 20081128, end: 20081219
  4. UNSPECIFIED MEDICATION [Concomitant]
     Dates: start: 20080408, end: 20090119

REACTIONS (4)
  - ACUTE MYELOMONOCYTIC LEUKAEMIA [None]
  - DRUG INEFFECTIVE [None]
  - INFECTION [None]
  - LUNG NEOPLASM MALIGNANT [None]
